FAERS Safety Report 5082690-6 (Version None)
Quarter: 2006Q3

REPORT INFORMATION
  Report Type: 
  Country: None (occurrence: None)
  Receive Date: 20060816
  Receipt Date: 20060816
  Transmission Date: 20061208
  Serious: Yes (Death)
  Sender: FDA-Public Use
  Company Number: None

PATIENT
  Age: 64 Year
  Sex: Female
  Weight: 48 kg

DRUGS (7)
  1. IRESSA [Suspect]
     Indication: MENINGITIS
     Dosage: 750MG QD PO X 14 DAYS
     Route: 048
     Dates: start: 20060616, end: 20060722
  2. IRESSA [Suspect]
     Indication: NEOPLASM MALIGNANT
     Dosage: 750MG QD PO X 14 DAYS
     Route: 048
     Dates: start: 20060616, end: 20060722
  3. IRESSA [Suspect]
     Indication: MENINGITIS
     Dosage: 500MG QD PO X 14 DAYS
     Route: 048
     Dates: start: 20060701, end: 20060811
  4. IRESSA [Suspect]
     Indication: NEOPLASM MALIGNANT
     Dosage: 500MG QD PO X 14 DAYS
     Route: 048
     Dates: start: 20060701, end: 20060811
  5. ATIVAN [Concomitant]
  6. CALCIUM GLUCONATE [Concomitant]
  7. MULTIVITAMIN [Concomitant]

REACTIONS (6)
  - ABASIA [None]
  - ACTIVITIES OF DAILY LIVING IMPAIRED [None]
  - ASTHENIA [None]
  - DEPRESSED LEVEL OF CONSCIOUSNESS [None]
  - DISEASE PROGRESSION [None]
  - GENERAL PHYSICAL HEALTH DETERIORATION [None]
